FAERS Safety Report 9064087 (Version 1)
Quarter: 2013Q1

REPORT INFORMATION
  Report Type: Spontaneous
  Country: US (occurrence: US)
  Receive Date: 20130128
  Receipt Date: 20130128
  Transmission Date: 20140127
  Serious: No
  Sender: FDA-Public Use
  Company Number: US-MYLANLABS-2012S1022048

PATIENT
  Age: 59 Year
  Sex: Female
  Weight: 83.92 kg

DRUGS (6)
  1. LEVOTHYROXINE SODIUM TABLETS, USP [Suspect]
     Indication: HYPOTHYROIDISM
     Route: 048
     Dates: start: 201205, end: 20121014
  2. PANTOPRAZOLE SODIUM DELAYED-RELEASE TABLETS [Suspect]
     Indication: GASTROOESOPHAGEAL REFLUX DISEASE
     Route: 048
     Dates: start: 201207, end: 20121014
  3. PANTOPRAZOLE SODIUM DELAYED-RELEASE TABLETS [Suspect]
     Indication: GASTROOESOPHAGEAL REFLUX DISEASE
     Route: 048
     Dates: start: 201207, end: 20121014
  4. METFORMIN [Concomitant]
     Indication: INSULIN-REQUIRING TYPE 2 DIABETES MELLITUS
  5. VENLAFAXINE [Concomitant]
     Indication: ANXIETY
  6. ESTROGEL [Concomitant]
     Indication: POSTMENOPAUSE

REACTIONS (3)
  - Hypersensitivity [Recovered/Resolved]
  - Diarrhoea [Recovered/Resolved]
  - Reaction to drug excipients [Recovered/Resolved]
